FAERS Safety Report 5920271-X (Version None)
Quarter: 2008Q4

REPORT INFORMATION
  Report Type: 
  Country: None (occurrence: None)
  Receive Date: 20081014
  Receipt Date: 20081008
  Transmission Date: 20090506
  Serious: Yes (Death, Other)
  Sender: FDA-Public Use
  Company Number: 2007SP020817

PATIENT
  Age: 75 Year
  Sex: Female
  Weight: 44 kg

DRUGS (7)
  1. TEMODAL [Suspect]
     Indication: GLIOBLASTOMA MULTIFORME
     Dosage: 150 MG; QD; PO
     Route: 048
     Dates: start: 20070206, end: 20070210
  2. TEMODAL [Suspect]
     Indication: GLIOBLASTOMA MULTIFORME
     Dosage: 150 MG; QD; PO
     Route: 048
     Dates: start: 20070313, end: 20070317
  3. VALPROATE SODIUM [Suspect]
     Indication: DRUG USE FOR UNKNOWN INDICATION
     Dosage: ; PO
     Route: 048
     Dates: start: 20070206
  4. BIOFERMIN [Concomitant]
  5. THEO-DUR [Concomitant]
  6. KIPRES [Concomitant]
  7. CYMERIN [Concomitant]

REACTIONS (1)
  - THROMBOCYTOPENIA [None]
